FAERS Safety Report 11419980 (Version 1)
Quarter: 2015Q3

REPORT INFORMATION
  Report Type: Spontaneous
  Country: US (occurrence: None)
  Receive Date: 20150820
  Receipt Date: 20150820
  Transmission Date: 20151125
  Serious: Yes (Other)
  Sender: FDA-Public Use
  Company Number: 2015SCAL000345

PATIENT
  Sex: Female

DRUGS (2)
  1. DIVALPROEX SODIUM (VALPROATE SEMISODIUM) [Concomitant]
     Active Substance: DIVALPROEX SODIUM
  2. ARIPIPRAZOLE. [Suspect]
     Active Substance: ARIPIPRAZOLE
     Indication: MANIA

REACTIONS (4)
  - Fatigue [None]
  - Sedation [None]
  - Mental impairment [None]
  - Speech disorder [None]
